FAERS Safety Report 10828104 (Version 1)
Quarter: 2015Q1

REPORT INFORMATION
  Report Type: Spontaneous
  Country: US (occurrence: US)
  Receive Date: 20150219
  Receipt Date: 20150219
  Transmission Date: 20150721
  Serious: No
  Sender: FDA-Public Use
  Company Number: US-009507513-1502USA006917

PATIENT
  Sex: Male

DRUGS (1)
  1. ASMANEX [Suspect]
     Active Substance: MOMETASONE FUROATE
     Indication: ASTHMA
     Dosage: 220 MICROGRAM, UNKNOWN
     Route: 055

REACTIONS (5)
  - Wheezing [Unknown]
  - Product quality issue [Unknown]
  - Drug dose omission [Unknown]
  - Respiratory tract congestion [Unknown]
  - Asthma [Unknown]
